FAERS Safety Report 14979936 (Version 1)
Quarter: 2018Q2

REPORT INFORMATION
  Report Type: Spontaneous
  Country: PT (occurrence: PT)
  Receive Date: 20180606
  Receipt Date: 20180606
  Transmission Date: 20180711
  Serious: Yes (Other)
  Sender: FDA-Public Use
  Company Number: PT-MYLANLABS-2018M1037177

PATIENT
  Age: 68 Year
  Sex: Male

DRUGS (1)
  1. ZOLEDRONIC ACID [Suspect]
     Active Substance: ZOLEDRONIC ACID
     Indication: SMALL CELL LUNG CANCER
     Dosage: 1 DF, Q4W
     Route: 042
     Dates: end: 201106

REACTIONS (5)
  - Exposed bone in jaw [Unknown]
  - Product use in unapproved indication [Unknown]
  - Osteonecrosis of jaw [Recovered/Resolved]
  - Facial pain [Not Recovered/Not Resolved]
  - Oral cavity fistula [Unknown]

NARRATIVE: CASE EVENT DATE: 201104
